FAERS Safety Report 9099811 (Version 2)
Quarter: 2013Q1

REPORT INFORMATION
  Report Type: Spontaneous
  Country: US (occurrence: US)
  Receive Date: 20130214
  Receipt Date: 20130328
  Transmission Date: 20140127
  Serious: Yes (Hospitalization)
  Sender: FDA-Public Use
  Company Number: US-PFIZER INC-2013056749

PATIENT
  Age: 61 Year
  Sex: Female
  Weight: 114 kg

DRUGS (7)
  1. PRISTIQ [Suspect]
     Indication: HOT FLUSH
     Dosage: 50 MG, DAILY
     Route: 048
  2. PRISTIQ [Suspect]
     Dosage: 50 MG ALTERNATE DAY
     Route: 048
     Dates: start: 201301
  3. PREVACID [Concomitant]
     Indication: ANTACID THERAPY
     Dosage: 40 MG, DAILY
  4. IMODIUM [Concomitant]
     Dosage: 2 DF, DAILY
  5. METOPROLOL TARTRATE [Concomitant]
     Indication: BLOOD PRESSURE ABNORMAL
     Dosage: 25 MG, 2X/DAY
  6. LISINOPRIL W/HYDROCHLOROTHIAZIDE [Concomitant]
     Indication: BLOOD PRESSURE ABNORMAL
     Dosage: 2 X LISINOPRIL 20 MG/HYDROCHLOROTHIAZIDE 12.5 MG, DAILY
  7. PRAVASTATIN [Concomitant]
     Indication: BLOOD CHOLESTEROL ABNORMAL
     Dosage: UNK

REACTIONS (3)
  - Intentional drug misuse [Unknown]
  - Atrial fibrillation [Unknown]
  - Emotional disorder [Unknown]
